FAERS Safety Report 5271963-X (Version None)
Quarter: 2007Q1

REPORT INFORMATION
  Report Type: 
  Country: None (occurrence: None)
  Receive Date: 20061214
  Receipt Date: 20060726
  Transmission Date: 20070707
  Serious: Yes (Hospitalization, Other)
  Sender: FDA-Public Use
  Company Number: 2006045090

PATIENT
  Age: 47 Year
  Sex: Male
  Weight: 89.8122 kg

DRUGS (2)
  1. BEXTRA [Suspect]
     Indication: INFLAMMATION
     Dosage: 40 MG (20 MG,2 IN 1 D)
     Dates: start: 20030801, end: 20041010
  2. BEXTRA [Suspect]
     Indication: PAIN
     Dosage: 40 MG (20 MG,2 IN 1 D)
     Dates: start: 20030801, end: 20041010

REACTIONS (1)
  - MYOCARDIAL INFARCTION [None]
